FAERS Safety Report 14485056 (Version 2)
Quarter: 2018Q1

REPORT INFORMATION
  Report Type: Spontaneous
  Country: US (occurrence: US)
  Receive Date: 20180205
  Receipt Date: 20180226
  Transmission Date: 20180509
  Serious: Yes (Hospitalization)
  Sender: FDA-Public Use
  Company Number: US-PFIZER INC-2018042593

PATIENT
  Age: 50 Year
  Sex: Male

DRUGS (1)
  1. NEURONTIN [Suspect]
     Active Substance: GABAPENTIN
     Indication: PAIN
     Dosage: UNK

REACTIONS (5)
  - Rash papular [Recovered/Resolved]
  - Pruritus [Not Recovered/Not Resolved]
  - Rash generalised [Recovered/Resolved]
  - Product use in unapproved indication [Not Recovered/Not Resolved]
  - Swelling [Not Recovered/Not Resolved]
